FAERS Safety Report 20050149 (Version 3)
Quarter: 2022Q1

REPORT INFORMATION
  Report Type: Spontaneous
  Country: US (occurrence: US)
  Receive Date: 20211109
  Receipt Date: 20220224
  Transmission Date: 20220423
  Serious: No
  Sender: FDA-Public Use
  Company Number: US-LUPIN PHARMACEUTICALS INC.-2021-21412

PATIENT
  Sex: Female

DRUGS (1)
  1. ALBUTEROL SULFATE [Suspect]
     Active Substance: ALBUTEROL SULFATE
     Indication: Obstructive airways disorder
     Dosage: UNK (1 PUFF EVERY 4 HOURS)
     Dates: start: 20211014

REACTIONS (2)
  - Device delivery system issue [Unknown]
  - Device ineffective [Unknown]

NARRATIVE: CASE EVENT DATE: 20211001
